FAERS Safety Report 5051581-9 (Version None)
Quarter: 2006Q2

REPORT INFORMATION
  Report Type: 
  Country: None (occurrence: None)
  Receive Date: 20060614
  Receipt Date: 20060303
  Transmission Date: 20061013
  Serious: Yes (Other)
  Sender: FDA-Public Use
  Company Number: 439227

PATIENT
  Age: 63 Year
  Sex: Female

DRUGS (6)
  1. BONIVA [Suspect]
     Indication: OSTEOPOROSIS
     Dosage: ORAL
     Route: 048
     Dates: start: 20060303
  2. LISINOPRIL [Concomitant]
  3. BISOPROLOL FUMARATE [Concomitant]
  4. HYDROCHLOROTHIAZIDE [Concomitant]
  5. KEPPRA [Concomitant]
  6. ZIAC [Concomitant]

REACTIONS (1)
  - HYPERSENSITIVITY [None]
